FAERS Safety Report 5614177-3 (Version None)
Quarter: 2008Q1

REPORT INFORMATION
  Report Type: 
  Country: None (occurrence: None)
  Receive Date: 20080205
  Receipt Date: 20080131
  Transmission Date: 20080703
  Serious: Yes (Other)
  Sender: FDA-Public Use
  Company Number: B0505139A

PATIENT
  Age: 73 Year
  Sex: Male

DRUGS (1)
  1. FLUTIDE DISKUS [Suspect]
     Indication: ASTHMA
     Route: 055
     Dates: start: 20080118, end: 20080122

REACTIONS (2)
  - BLOOD CREATININE INCREASED [None]
  - INTENTIONAL OVERDOSE [None]
